FAERS Safety Report 5193535-8 (Version None)
Quarter: 2006Q4

REPORT INFORMATION
  Report Type: 
  Country: None (occurrence: None)
  Receive Date: 20061228
  Receipt Date: 20060711
  Transmission Date: 20070319
  Serious: No
  Sender: FDA-Public Use
  Company Number: US-GLAXOSMITHKLINE-A0611818A

PATIENT
  Sex: Female

DRUGS (4)
  1. FLUTICASONE PROPIONATE [Suspect]
     Route: 045
  2. SYNTHROID [Concomitant]
  3. FLOVENT [Concomitant]
  4. SEREVENT [Concomitant]

REACTIONS (1)
  - DRUG INEFFECTIVE [None]
